FAERS Safety Report 23223830 (Version 2)
Quarter: 2023Q4

REPORT INFORMATION
  Report Type: Report from Study
  Country: US (occurrence: None)
  Receive Date: 20231124
  Receipt Date: 20231129
  Transmission Date: 20240110
  Serious: Yes (Hospitalization)
  Sender: FDA-Public Use
  Company Number: US-ROCHE-3458460

PATIENT
  Age: 51 Year
  Sex: Female

DRUGS (4)
  1. PERTUZUMAB [Suspect]
     Active Substance: PERTUZUMAB
     Indication: Metastases to meninges
     Dosage: ON 10/NOV/2023, SHE RECEIVED THE MOST RECENT DOSE OF PERTUZUMAB
     Route: 037
     Dates: start: 20230502
  2. TRASTUZUMAB [Suspect]
     Active Substance: TRASTUZUMAB
     Indication: Metastases to meninges
     Dosage: ON 10/NOV/2023, SHE RECEIVED THE MOST RECENT DOSE OF TRASTUZUMAB
     Route: 037
     Dates: start: 20230502
  3. PENTOXIFYLLINE [Concomitant]
     Active Substance: PENTOXIFYLLINE
  4. VITAMIN E [Concomitant]
     Active Substance: .ALPHA.-TOCOPHEROL

REACTIONS (1)
  - Brain oedema [Recovered/Resolved with Sequelae]

NARRATIVE: CASE EVENT DATE: 20231110
